FAERS Safety Report 23527399 (Version 1)
Quarter: 2024Q1

REPORT INFORMATION
  Report Type: Spontaneous
  Country: US (occurrence: US)
  Receive Date: 20240215
  Receipt Date: 20240215
  Transmission Date: 20240409
  Serious: No
  Sender: FDA-Public Use
  Company Number: US-ABBVIE-5637496

PATIENT
  Age: 72 Year
  Sex: Female

DRUGS (1)
  1. OXYTROL FOR WOMEN [Suspect]
     Active Substance: OXYBUTYNIN
     Indication: Product used for unknown indication
     Dosage: FORM STRENGTH : OXYBUTYNIN 3.9MG/DAY PCH
     Route: 062
     Dates: start: 20240207, end: 20240208

REACTIONS (2)
  - Rash papular [Unknown]
  - Pruritus [Unknown]

NARRATIVE: CASE EVENT DATE: 20240201
